FAERS Safety Report 8896458 (Version 1)
Quarter: 2012Q4

REPORT INFORMATION
  Report Type: Spontaneous
  Country: US (occurrence: None)
  Receive Date: 20121101
  Receipt Date: 20121101
  Transmission Date: 20130627
  Serious: Yes (Hospitalization)
  Sender: FDA-Public Use
  Company Number: FK201203202

PATIENT
  Age: 61 Year
  Sex: Male
  Weight: 80.6 kg

DRUGS (3)
  1. DEXAMETHASONE SODIUM PHOSPHATE [Suspect]
     Indication: CHRONIC LYMPHOCYTIC LEUKAEMIA
     Dosage: Day 1 and  Day 2 of  28  Day Cycle, (not otherwise specified)
     Route: 042
     Dates: start: 20120730, end: 20120925
  2. TREANDA [Suspect]
     Indication: CHRONIC LYMPHOCYTIC LEUKAEMIA
     Dosage: Day  1  and  Day 2  of  28  Day Cycle, (not otherwise specified)
     Route: 042
     Dates: start: 20120730, end: 20120925
  3. RITUXIMAB [Suspect]
     Indication: CHRONIC LYMPHOCYTIC LEUKAEMIA
     Dosage: Day 1  of  28  Day Cycle, (not otherwise specified)
     Route: 042
     Dates: start: 20120730, end: 20120724

REACTIONS (3)
  - Pubis fracture [None]
  - Musculoskeletal chest pain [None]
  - Fall [None]
